FAERS Safety Report 19103854 (Version 1)
Quarter: 2021Q2

REPORT INFORMATION
  Report Type: Report from Study
  Country: CO (occurrence: CO)
  Receive Date: 20210407
  Receipt Date: 20210407
  Transmission Date: 20210717
  Serious: Yes (Other)
  Sender: FDA-Public Use
  Company Number: NVSC2021CO073086

PATIENT
  Sex: Female
  Weight: 60 kg

DRUGS (2)
  1. LOSARTAN. [Suspect]
     Active Substance: LOSARTAN
     Indication: HYPERTENSION
     Dosage: 50 MG, QD (EVERY 24 HOURS)
     Route: 048
  2. METOPROLOL. [Suspect]
     Active Substance: METOPROLOL
     Indication: HYPERTENSION
     Dosage: 50 MG, QD (1 TABLET IN THE MORNING AND HALF TABLET AT NIGHT)
     Route: 048

REACTIONS (3)
  - Hyperthyroidism [Unknown]
  - Inappropriate schedule of product administration [Unknown]
  - Pancreatic neuroendocrine tumour [Unknown]
